FAERS Safety Report 18414826 (Version 2)
Quarter: 2020Q4

REPORT INFORMATION
  Report Type: Spontaneous
  Country: GB (occurrence: GB)
  Receive Date: 20201022
  Receipt Date: 20201029
  Transmission Date: 20210114
  Serious: Yes (Other)
  Sender: FDA-Public Use
  Company Number: GB-TEVA-2020-GB-1839485

PATIENT
  Age: 24 Year
  Sex: Female

DRUGS (10)
  1. PREDNISOLONE. [Suspect]
     Active Substance: PREDNISOLONE
     Dosage: 15 MILLIGRAM DAILY; WEANED BY 25MG EVERY TWO WEEKS DURING PREGNANCIES ALSO ENDED WITH MISCARRIAGES
     Route: 048
  2. PREDNISOLONE. [Suspect]
     Active Substance: PREDNISOLONE
     Dosage: 20 MILLIGRAM DAILY; THEN TAPERED OFF AFTER REDUCTION IN DOSE BY 5MG PER WEEK
     Route: 048
     Dates: start: 2009
  3. METHOTREXATE. [Suspect]
     Active Substance: METHOTREXATE
     Indication: DERMATOMYOSITIS
     Route: 065
     Dates: start: 200911
  4. MYCOPHENOLATE [Suspect]
     Active Substance: MYCOPHENOLIC ACID
     Indication: DERMATOMYOSITIS
     Dosage: 200 MILLIGRAM DAILY; STOPPED AFTER THREE MONTHS DUE TO PREGNANCY
     Route: 065
     Dates: start: 201006
  5. IVIG [Suspect]
     Active Substance: HUMAN IMMUNOGLOBULIN G
     Indication: DERMATOMYOSITIS
     Dosage: UNSUSTAINED RESPONSE NOTED
     Route: 042
     Dates: start: 201002
  6. IVIG [Suspect]
     Active Substance: HUMAN IMMUNOGLOBULIN G
     Indication: DERMATOMYOSITIS
     Dosage: ALONG WITH HYDROXYCHLOROQUINE DURING PREGNANCY WITH ONLY SUBOPTIMAL RESPONSE
     Route: 042
     Dates: start: 2010
  7. PREDNISOLONE. [Suspect]
     Active Substance: PREDNISOLONE
     Indication: DERMATOMYOSITIS
     Dosage: 30 MILLIGRAM DAILY; WITH HYDROXYCHLOROQUINE; THEN TAPERED
     Route: 048
     Dates: start: 200906
  8. HYDROXYCHLOROQUINE [Suspect]
     Active Substance: HYDROXYCHLOROQUINE
     Indication: DERMATOMYOSITIS
     Dosage: 400 MILLIGRAM DAILY; INITIALLY WITH PREDNISOLONE; THEN CONTINUED FOR ABOUT 4.5 YEARS
     Route: 065
     Dates: start: 200906, end: 2013
  9. METHYLPREDNISOLONE. [Suspect]
     Active Substance: METHYLPREDNISOLONE
     Indication: DERMATOMYOSITIS
     Dosage: 2 DOSES
     Route: 042
     Dates: start: 200910
  10. METHYLPREDNISOLONE. [Suspect]
     Active Substance: METHYLPREDNISOLONE
     Indication: DERMATOMYOSITIS
     Dosage: 2 PULSES; SHOWED SUBOPTIMAL RESPONSE
     Route: 042
     Dates: start: 200912

REACTIONS (3)
  - Drug ineffective [Unknown]
  - Maternal exposure during pregnancy [Unknown]
  - Abortion spontaneous [Unknown]
